FAERS Safety Report 7042309 (Version 6)
Quarter: 2012Q4

REPORT INFORMATION
  Report Type: Spontaneous
  Country: DK (occurrence: None)
  Receive Date: 20090624
  Receipt Date: 20120828
  Transmission Date: 20130627
  Serious: Yes (Hospitalization, Other)
  Sender: FDA-Public Use
  Company Number: 2009AL003932

PATIENT
  Age: 36 Year
  Sex: Female

DRUGS (21)
  1. DIAZEPAM [Suspect]
  2. ENULOSE [Suspect]
     Dosage: 10 ML
  3. FERROUS SULFATE [Suspect]
     Dosage: 200 MG;BID;PO
     Route: 048
  4. PERINDOPRIL ERBUMINE [Suspect]
     Dosage: 2 MG;QD;PO
     Route: 048
  5. CLOZARIL [Suspect]
     Indication: SCHIZOPHRENIA
     Dosage: 250 MG;QD;PO
     Route: 048
     Dates: start: 200505, end: 20050519
  6. CLOZARIL [Suspect]
     Indication: SCHIZOPHRENIA
     Dosage: 250 MG;QD;PO
     Route: 048
  7. CLOZARIL [Suspect]
     Indication: SCHIZOPHRENIA
     Dosage: 250 MG;QD;PO
     Route: 048
     Dates: start: 20060605, end: 20060713
  8. LANSOPRAZOLE [Suspect]
     Dosage: 30 MG;QD;PO
     Route: 048
  9. FOLIC ACID [Suspect]
     Dosage: 5 MG;QD;PO
     Route: 048
  10. TRIMETHOPRIM [Suspect]
     Indication: URINARY TRACT INFECTION
  11. ZOPICLONE [Suspect]
     Dosage: 3.75 MG
  12. CLOZAPINE [Suspect]
     Dosage: PO
     Route: 048
     Dates: start: 20080519
  13. FUROSEMIDE [Concomitant]
  14. RAMIPRIL [Concomitant]
  15. ATORVASTATIN [Concomitant]
  16. BENDROFLUMETHIAZIDE [Concomitant]
  17. ARIPIPRAZOLE [Concomitant]
  18. ABILIFY [Concomitant]
  19. ZOPICLONE [Concomitant]
  20. CLOZARIL (CLOZAPINE) [Suspect]
  21. CLOZARIL (CLOZAPINE) [Suspect]
     Dates: start: 20080519

REACTIONS (15)
  - Malaise [None]
  - Pyrexia [None]
  - White blood cell count increased [None]
  - Neutrophil count increased [None]
  - Cardiac murmur [None]
  - Constipation [None]
  - Sinus tachycardia [None]
  - Blood culture positive [None]
  - Staphylococcal infection [None]
  - Physical assault [None]
  - Diabetes mellitus [None]
  - Thrombocytosis [None]
  - Skin disorder [None]
  - Body mass index decreased [None]
  - Abdominal tenderness [None]
